FAERS Safety Report 11946607 (Version 2)
Quarter: 2016Q1

REPORT INFORMATION
  Report Type: Spontaneous
  Country: US (occurrence: US)
  Receive Date: 20160125
  Receipt Date: 20160129
  Transmission Date: 20160526
  Serious: No
  Sender: FDA-Public Use
  Company Number: US-AMGEN-USASP2015137357

PATIENT
  Age: 76 Year
  Sex: Female
  Weight: 95.25 kg

DRUGS (10)
  1. REPATHA [Suspect]
     Active Substance: EVOLOCUMAB
     Indication: HYPERLIPIDAEMIA
     Dosage: 140 ML, QMO
     Route: 030
     Dates: start: 20151211
  2. ERYTHROMYCIN. [Concomitant]
     Active Substance: ERYTHROMYCIN
     Dosage: 7 G, EVERY 3 TO 4 HOIJRS
     Dates: start: 20151204
  3. HYDROCHLOROTHIAZIDE. [Concomitant]
     Active Substance: HYDROCHLOROTHIAZIDE
     Dosage: 12.5 MG, QD
     Route: 048
     Dates: start: 20160102
  4. LISINOPRIL. [Concomitant]
     Active Substance: LISINOPRIL
     Dosage: 20 MG, QD
     Route: 048
     Dates: start: 20150628
  5. TRIMETHOPRIM. [Concomitant]
     Active Substance: TRIMETHOPRIM
     Dosage: 160 MG, BID
     Route: 048
     Dates: start: 20151204
  6. SULFAMETHOXAZOLE [Concomitant]
     Active Substance: SULFAMETHOXAZOLE
     Dosage: 800 MG, BID
     Route: 048
     Dates: start: 20151204
  7. PREDNISOLONE ACETATE. [Concomitant]
     Active Substance: PREDNISOLONE ACETATE
     Dosage: PLACE 1 DROP IN TO AFFECTED EYE FOR 4 TIMES DAILY
     Dates: start: 20151207
  8. HYDROCODONE [Concomitant]
     Active Substance: HYDROCODONE
     Dosage: 5 MG, BID
     Route: 048
     Dates: start: 20110114
  9. ACETAMINOPHEN. [Concomitant]
     Active Substance: ACETAMINOPHEN
     Dosage: 325 MG, BID
     Route: 048
     Dates: start: 20110114
  10. PREMARIN [Concomitant]
     Active Substance: ESTROGENS, CONJUGATED
     Dosage: 30 MG, QD
     Dates: start: 20111202

REACTIONS (9)
  - Drug intolerance [Unknown]
  - Heart rate irregular [Unknown]
  - Pelvic pain [Unknown]
  - Gastrointestinal disorder [Unknown]
  - Muscle spasms [Unknown]
  - Abdominal discomfort [Unknown]
  - Myalgia [Unknown]
  - Bone pain [Unknown]
  - Feeling abnormal [Unknown]
